FAERS Safety Report 11087917 (Version 1)
Quarter: 2015Q2

REPORT INFORMATION
  Report Type: Report from Study
  Country: US (occurrence: US)
  Receive Date: 20150504
  Receipt Date: 20150504
  Transmission Date: 20150821
  Serious: Yes (Hospitalization)
  Sender: FDA-Public Use
  Company Number: PHEH2015US003152

PATIENT
  Age: 82 Year
  Sex: Male

DRUGS (1)
  1. TOBI [Suspect]
     Active Substance: TOBRAMYCIN
     Indication: CHRONIC OBSTRUCTIVE PULMONARY DISEASE
     Dosage: 300 MG, BID (EVERY 12 HOURS FOR 28 DAYS ON AND 28 DAYS OFF)
     Route: 055

REACTIONS (12)
  - Fall [Unknown]
  - Altered state of consciousness [Unknown]
  - Wheezing [Unknown]
  - Lung disorder [Unknown]
  - Syncope [Unknown]
  - Bronchiectasis [Unknown]
  - Productive cough [Unknown]
  - Product use issue [Unknown]
  - Chronic obstructive pulmonary disease [Unknown]
  - Pseudomonas test positive [Unknown]
  - Dyspnoea exertional [Unknown]
  - Pneumonia [Unknown]

NARRATIVE: CASE EVENT DATE: 20150319
